FAERS Safety Report 8790661 (Version 1)
Quarter: 2012Q4

REPORT INFORMATION
  Report Type: Spontaneous
  Country: US (occurrence: None)
  Receive Date: 20120912
  Receipt Date: 20120912
  Transmission Date: 20130627
  Serious: No
  Sender: FDA-Public Use
  Company Number: None

PATIENT
  Age: 47 Year
  Sex: Male
  Weight: 72.2 kg

DRUGS (2)
  1. ^RESCUE INHALERS^ [Suspect]
     Route: 048
     Dates: start: 20120119, end: 20120606
  2. RIBAVIRIN [Suspect]
     Route: 048
     Dates: start: 20111221, end: 20120608

REACTIONS (2)
  - Thrombocytopenia [None]
  - Angina pectoris [None]
